FAERS Safety Report 22399978 (Version 1)
Quarter: 2023Q2

REPORT INFORMATION
  Report Type: Spontaneous
  Country: CN (occurrence: None)
  Receive Date: 20230602
  Receipt Date: 20230602
  Transmission Date: 20230721
  Serious: Yes (Other)
  Sender: FDA-Public Use
  Company Number: CN-ROCHE-3358262

PATIENT
  Age: 71 Year
  Sex: Female

DRUGS (6)
  1. HERCEPTIN [Suspect]
     Active Substance: TRASTUZUMAB
     Indication: Invasive breast carcinoma
     Dosage: TCBHP REGIMEN FOR 4 CYCLES
     Route: 065
  2. HERCEPTIN [Suspect]
     Active Substance: TRASTUZUMAB
     Dosage: THP REGIMEN FOR 2 CYCLES
     Route: 065
  3. PERJETA [Suspect]
     Active Substance: PERTUZUMAB
     Indication: Invasive breast carcinoma
     Dosage: TCBHP REGIMEN FOR 4 CYCLES
     Route: 065
  4. PERJETA [Suspect]
     Active Substance: PERTUZUMAB
     Dosage: THP REGIMEN FOR 2 CYCLES
     Route: 065
  5. DOCETAXEL [Concomitant]
     Active Substance: DOCETAXEL
  6. CARBOPLATIN [Concomitant]
     Active Substance: CARBOPLATIN

REACTIONS (2)
  - Platelet count decreased [Recovered/Resolved]
  - Myelosuppression [Unknown]
